FAERS Safety Report 4980594-8 (Version None)
Quarter: 2006Q2

REPORT INFORMATION
  Report Type: 
  Country: None (occurrence: None)
  Receive Date: 20060424
  Receipt Date: 20050301
  Transmission Date: 20061013
  Serious: Yes (Hospitalization, Other)
  Sender: FDA-Public Use
  Company Number: US-MERCK-0503USA00400

PATIENT
  Age: 50 Year
  Sex: Female
  Weight: 72 kg

DRUGS (8)
  1. VIOXX [Suspect]
     Indication: OSTEOARTHRITIS
     Route: 048
     Dates: start: 19990101, end: 20040901
  2. VIOXX [Suspect]
     Route: 048
     Dates: start: 19990101, end: 20040901
  3. VIOXX [Suspect]
     Route: 048
     Dates: start: 19990101, end: 20040901
  4. ULTRAM [Concomitant]
     Route: 065
  5. TRAZODONE HYDROCHLORIDE [Concomitant]
     Indication: SLEEP DISORDER
     Route: 065
  6. ASCORBIC ACID [Concomitant]
     Route: 065
  7. PYRIDOXINE [Concomitant]
     Route: 065
  8. CALCIUM (UNSPECIFIED) [Concomitant]
     Route: 065

REACTIONS (37)
  - ABDOMINAL DISTENSION [None]
  - ARTHRALGIA [None]
  - ARTHRITIS [None]
  - ARTHROPATHY [None]
  - BONE INFARCTION [None]
  - BONE LESION [None]
  - CARTILAGE INJURY [None]
  - CHEST DISCOMFORT [None]
  - DEEP VEIN THROMBOSIS [None]
  - DRUG ABUSER [None]
  - DRUG DEPENDENCE [None]
  - DYSPNOEA [None]
  - DYSURIA [None]
  - EPIGASTRIC DISCOMFORT [None]
  - FALL [None]
  - FLANK PAIN [None]
  - FOOT OPERATION [None]
  - GASTRIC DISORDER [None]
  - GASTROINTESTINAL HAEMORRHAGE [None]
  - HAEMATURIA [None]
  - HOMANS' SIGN [None]
  - INJURY [None]
  - LEUKOCYTOSIS [None]
  - MENISCUS LESION [None]
  - MUSCLE STRAIN [None]
  - NEPHROLITHIASIS [None]
  - OSTEOARTHRITIS [None]
  - OSTEONECROSIS [None]
  - PLEURITIC PAIN [None]
  - PULMONARY EMBOLISM [None]
  - ROTATOR CUFF SYNDROME [None]
  - SARCOIDOSIS [None]
  - SHOULDER PAIN [None]
  - SINUS TACHYCARDIA [None]
  - SMALL INTESTINAL OBSTRUCTION [None]
  - THROMBOSIS [None]
  - VOMITING [None]
